FAERS Safety Report 22000925 (Version 1)
Quarter: 2023Q1

REPORT INFORMATION
  Report Type: Spontaneous
  Country: US (occurrence: None)
  Receive Date: 20230215
  Receipt Date: 20230215
  Transmission Date: 20230417
  Serious: No
  Sender: FDA-Public Use
  Company Number: None

PATIENT
  Age: 79 Year
  Sex: Male

DRUGS (1)
  1. AMBRISENTAN [Suspect]
     Active Substance: AMBRISENTAN
     Dosage: FREQUENCY : DAILY;?
     Route: 048
     Dates: start: 20230111, end: 20230215

REACTIONS (4)
  - Headache [None]
  - Pain in jaw [None]
  - Gait disturbance [None]
  - Self-medication [None]

NARRATIVE: CASE EVENT DATE: 20230215
